FAERS Safety Report 15386514 (Version 1)
Quarter: 2018Q3

REPORT INFORMATION
  Report Type: Spontaneous
  Country: CA (occurrence: CA)
  Receive Date: 20180914
  Receipt Date: 20180914
  Transmission Date: 20181010
  Serious: Yes (Death, Hospitalization, Other)
  Sender: FDA-Public Use
  Company Number: CA-PFIZER INC-2018372515

PATIENT
  Age: 2 Year
  Sex: Female

DRUGS (12)
  1. RAPAMUNE [Suspect]
     Active Substance: SIROLIMUS
     Indication: IMMUNOSUPPRESSANT DRUG THERAPY
     Dosage: 0.3 MG, 1X/DAY
     Route: 048
  2. THYMOGLOBULIN [Concomitant]
     Active Substance: LAPINE T-LYMPHOCYTE IMMUNE GLOBULIN
     Dosage: UNK
     Route: 065
  3. RAPAMUNE [Interacting]
     Active Substance: SIROLIMUS
     Dosage: 1.0 MG, 1X/DAY
     Route: 048
  4. TACROLIMUS. [Interacting]
     Active Substance: TACROLIMUS
     Indication: IMMUNOSUPPRESSANT DRUG THERAPY
     Dosage: 0.2 MG, 2X/DAY
     Route: 048
  5. CELLCEPT [MYCOPHENOLATE MOFETIL HYDROCHLORIDE] [Concomitant]
     Dosage: UNK
     Route: 048
  6. METHYLPREDNISOLONE SODIUM SUCCINATE. [Concomitant]
     Active Substance: METHYLPREDNISOLONE SODIUM SUCCINATE
     Dosage: UNK
     Route: 065
  7. NADOLOL. [Concomitant]
     Active Substance: NADOLOL
     Dosage: UNK
     Route: 065
  8. RAPAMUNE [Interacting]
     Active Substance: SIROLIMUS
     Dosage: 0.5 MG, 1X/DAY
     Route: 048
  9. PREDNISOLONE. [Concomitant]
     Active Substance: PREDNISOLONE
     Dosage: UNK
     Route: 065
  10. RAPAMUNE [Interacting]
     Active Substance: SIROLIMUS
     Dosage: 2.0 MG, 1X/DAY
     Route: 048
  11. TACROLIMUS. [Interacting]
     Active Substance: TACROLIMUS
     Dosage: 0.4 MG, 2X/DAY
     Route: 048
  12. AMIODARONE HCL [Interacting]
     Active Substance: AMIODARONE HYDROCHLORIDE
     Indication: ARRHYTHMIA
     Dosage: UNK
     Route: 065

REACTIONS (19)
  - Blood albumin increased [Fatal]
  - Haemoglobin decreased [Fatal]
  - International normalised ratio increased [Fatal]
  - Electrocardiogram abnormal [Fatal]
  - Drug interaction [Fatal]
  - Right ventricular dysfunction [Fatal]
  - Transaminases increased [Fatal]
  - Ventricular tachycardia [Fatal]
  - Drug level increased [Fatal]
  - Coronary artery disease [Fatal]
  - Ejection fraction decreased [Fatal]
  - Pyrexia [Fatal]
  - Disturbance in attention [Fatal]
  - Hyperbilirubinaemia [Fatal]
  - Cardiac failure congestive [Fatal]
  - Complication associated with device [Fatal]
  - Renal impairment [Fatal]
  - White blood cell count decreased [Fatal]
  - Anaemia [Fatal]
